FAERS Safety Report 10991508 (Version 1)
Quarter: 2015Q2

REPORT INFORMATION
  Report Type: Spontaneous
  Country: US (occurrence: US)
  Receive Date: 20150406
  Receipt Date: 20150406
  Transmission Date: 20150821
  Serious: No
  Sender: FDA-Public Use
  Company Number: US-GLAXOSMITHKLINE-US2015044975

PATIENT
  Age: 56 Year
  Sex: Female

DRUGS (35)
  1. ZETIA [Concomitant]
     Active Substance: EZETIMIBE
  2. FLUSH FREE NIACIN [Concomitant]
  3. SINGULAIR [Concomitant]
     Active Substance: MONTELUKAST SODIUM
  4. XYZAL [Concomitant]
     Active Substance: LEVOCETIRIZINE DIHYDROCHLORIDE
  5. METFORMIN [Concomitant]
     Active Substance: METFORMIN HYDROCHLORIDE
  6. VITAMIN B COMPLEX [Concomitant]
     Active Substance: CYANOCOBALAMIN\DEXPANTHENOL\NIACINAMIDE\PYRIDOXINE HYDROCHLORIDE\RIBOFLAVIN 5^-PHOSPHATE SODIUM\THIAMINE HYDROCHLORIDE\VITAMIN B COMPLEX
  7. LAMICTAL [Concomitant]
     Active Substance: LAMOTRIGINE
  8. CRANBERRY SUPPLEMENT [Concomitant]
  9. LEVALBUTEROL [Concomitant]
     Active Substance: LEVALBUTEROL
  10. MELATONIN SUPPLEMENT [Concomitant]
  11. HIZENTRA [Concomitant]
     Active Substance: HUMAN IMMUNOGLOBULIN G
  12. FISH OIL SUPPLEMENT [Concomitant]
  13. FLAX SEED OIL SUPPLEMENT [Concomitant]
  14. GEMFIBROZIL. [Concomitant]
     Active Substance: GEMFIBROZIL
  15. METOPROLOL SUCCINATE ER [Concomitant]
     Active Substance: METOPROLOL SUCCINATE
  16. PROBIOTIC [Concomitant]
     Active Substance: PROBIOTICS NOS
  17. AEROSPAN [Concomitant]
     Active Substance: FLUNISOLIDE
  18. PROTONIX [Concomitant]
     Active Substance: PANTOPRAZOLE SODIUM
  19. ZETONNA INHALATIONAL POWDER [Concomitant]
  20. BUDESONIDE. [Concomitant]
     Active Substance: BUDESONIDE
  21. CINNAMON SUPPLEMENT [Concomitant]
  22. LEVOTHYROXINE [Concomitant]
     Active Substance: LEVOTHYROXINE
  23. PRED FORTE EYE DROPS [Concomitant]
  24. PREDNISONE. [Concomitant]
     Active Substance: PREDNISONE
  25. THEOPHYLLINE [Concomitant]
     Active Substance: THEOPHYLLINE ANHYDROUS
  26. VALTREX [Concomitant]
     Active Substance: VALACYCLOVIR HYDROCHLORIDE
  27. VITAMIN D3 [Concomitant]
     Active Substance: CHOLECALCIFEROL
  28. XOPENEX [Concomitant]
     Active Substance: LEVALBUTEROL HYDROCHLORIDE
  29. GINGER ROOT [Concomitant]
  30. LORAZEPAM. [Concomitant]
     Active Substance: LORAZEPAM
  31. SIMVASTATIN. [Concomitant]
     Active Substance: SIMVASTATIN
  32. BREO ELLIPTA [Suspect]
     Active Substance: FLUTICASONE FUROATE\VILANTEROL TRIFENATATE
     Indication: ASTHMA
     Dosage: 1 PUFF(S), QD
     Route: 055
     Dates: start: 20150402
  33. ABILIFY [Concomitant]
     Active Substance: ARIPIPRAZOLE
  34. EFFEXOR XR [Concomitant]
     Active Substance: VENLAFAXINE HYDROCHLORIDE
  35. TYLENOL [Concomitant]
     Active Substance: ACETAMINOPHEN

REACTIONS (7)
  - Headache [Recovering/Resolving]
  - Vomiting [Recovered/Resolved]
  - Pyrexia [Recovered/Resolved]
  - Cough [Recovered/Resolved]
  - Nausea [Recovered/Resolved]
  - Viral infection [Unknown]
  - Malaise [Recovering/Resolving]

NARRATIVE: CASE EVENT DATE: 20150403
